FAERS Safety Report 5113673-5 (Version None)
Quarter: 2006Q3

REPORT INFORMATION
  Report Type: 
  Country: None (occurrence: None)
  Receive Date: 20060921
  Receipt Date: 20060921
  Transmission Date: 20061208
  Serious: Yes (Hospitalization)
  Sender: FDA-Public Use
  Company Number: None

PATIENT
  Age: 24 Year
  Sex: Female

DRUGS (2)
  1. TYLENOL PM [Suspect]
     Indication: SUICIDE ATTEMPT
     Dosage: 50 GM PO
     Route: 048
     Dates: start: 20050710, end: 20050712
  2. DIPHENHYDRAMINE HCL [Concomitant]

REACTIONS (4)
  - FATIGUE [None]
  - INCORRECT DOSE ADMINISTERED [None]
  - NAUSEA [None]
  - RETCHING [None]
